FAERS Safety Report 8574306-9 (Version None)
Quarter: 2012Q3

REPORT INFORMATION
  Report Type: 
  Country: None (occurrence: None)
  Receive Date: 20120806
  Receipt Date: 20120802
  Transmission Date: 20120928
  Serious: Yes (Death, Hospitalization, Other)
  Sender: FDA-Public Use
  Company Number: US-TEVA-350677USA

PATIENT
  Age: 55 Year
  Sex: Male

DRUGS (3)
  1. ALLOPURINOL [Concomitant]
  2. RITUXIMAB [Concomitant]
  3. TREANDA [Suspect]
     Route: 042

REACTIONS (7)
  - STEVENS-JOHNSON SYNDROME [None]
  - LUNG DISORDER [None]
  - NEUTROPENIA [None]
  - DEATH [None]
  - GASTROINTESTINAL TRACT IRRITATION [None]
  - THROMBOCYTOPENIA [None]
  - HEART RATE INCREASED [None]
